FAERS Safety Report 24341304 (Version 2)
Quarter: 2024Q4

REPORT INFORMATION
  Report Type: Report from Study
  Country: US (occurrence: US)
  Receive Date: 20240920
  Receipt Date: 20241211
  Transmission Date: 20250114
  Serious: Yes (Other)
  Sender: ABBVIE
  Company Number: US-ABBVIE-5881561

PATIENT
  Age: 16 Year
  Sex: Female

DRUGS (3)
  1. HUMIRA [Suspect]
     Active Substance: ADALIMUMAB
     Indication: Colitis ulcerative
     Dosage: CITRATE FREE
     Route: 058
     Dates: start: 20230426, end: 20240724
  2. HUMIRA [Suspect]
     Active Substance: ADALIMUMAB
     Dosage: CITRATE FREE, ACCIDENTALLY ADMINISTERED HUMIRA SHOT ONE WEEK EARLY
     Route: 058
     Dates: start: 20240731, end: 20240731
  3. HUMIRA [Suspect]
     Active Substance: ADALIMUMAB
     Dosage: CITRATE FREE, BACK TO NORMAL FREQUENECY
     Route: 058
     Dates: start: 202408, end: 202410

REACTIONS (2)
  - Gastrointestinal haemorrhage [Recovered/Resolved]
  - Inappropriate schedule of product administration [Recovered/Resolved]

NARRATIVE: CASE EVENT DATE: 20240731
